FAERS Safety Report 9548383 (Version 1)
Quarter: 2013Q2

REPORT INFORMATION
  Report Type: Spontaneous
  Country: US (occurrence: None)
  Receive Date: 20130606
  Receipt Date: 20130606
  Transmission Date: 20140414
  Serious: No
  Sender: FDA-Public Use
  Company Number: 1304USA013568

PATIENT
  Age: 84 Year
  Sex: Female

DRUGS (1)
  1. ZIOPTAN (TAFLUPROST) EYE DROPS, SOLUTION [Suspect]
     Indication: GLAUCOMA
     Route: 047
     Dates: start: 201207, end: 201212

REACTIONS (1)
  - Rash [None]
